FAERS Safety Report 5987216-8 (Version None)
Quarter: 2008Q4

REPORT INFORMATION
  Report Type: 
  Country: None (occurrence: None)
  Receive Date: 20081209
  Receipt Date: 20081201
  Transmission Date: 20090506
  Serious: Yes (Hospitalization)
  Sender: FDA-Public Use
  Company Number: CA-ABBOTT-08P-028-0490533-00

PATIENT
  Sex: Male

DRUGS (1)
  1. HUMIRA [Suspect]
     Indication: CROHN'S DISEASE
     Route: 058
     Dates: start: 20081022

REACTIONS (4)
  - ABDOMINAL PAIN [None]
  - ABNORMAL FAECES [None]
  - GASTROINTESTINAL HAEMORRHAGE [None]
  - INTESTINAL OBSTRUCTION [None]
